FAERS Safety Report 4894080-7 (Version None)
Quarter: 2005Q4

REPORT INFORMATION
  Report Type: 
  Country: None (occurrence: None)
  Receive Date: 20051223
  Receipt Date: 20051025
  Transmission Date: 20060501
  Serious: No
  Sender: FDA-Public Use
  Company Number: 2005PV003564

PATIENT
  Age: 59 Year
  Sex: Female
  Weight: 108.4097 kg

DRUGS (6)
  1. SYMLIN [Suspect]
     Indication: DIABETES MELLITUS NON-INSULIN-DEPENDENT
     Dosage: 60 MCG; TID; SC
     Route: 058
     Dates: start: 20051007
  2. NEORAL [Concomitant]
  3. CELLCEPT [Concomitant]
  4. LIPITOR [Concomitant]
  5. LASIX [Concomitant]
  6. ECOTRIN [Concomitant]

REACTIONS (1)
  - BLOOD GLUCOSE INCREASED [None]
